FAERS Safety Report 5139690-7 (Version None)
Quarter: 2006Q4

REPORT INFORMATION
  Report Type: 
  Country: None (occurrence: None)
  Receive Date: 20061024
  Receipt Date: 20061014
  Transmission Date: 20070319
  Serious: Yes (Other)
  Sender: FDA-Public Use
  Company Number: 2006125243

PATIENT
  Age: 26 Year
  Sex: Male
  Weight: 77.1115 kg

DRUGS (1)
  1. FRESHBURST LISTERINE ANTISEPTIC (MENTHOL, METHYL SALICYLATE, EUCALYPTO [Suspect]
     Indication: ALCOHOL POISONING
     Dosage: 3/4 BOTTLE ONCE, ORAL
     Route: 048
     Dates: start: 20061014, end: 20061014

REACTIONS (3)
  - FEELING DRUNK [None]
  - INCORRECT ROUTE OF DRUG ADMINISTRATION [None]
  - INTENTIONAL DRUG MISUSE [None]
